APPROVED DRUG PRODUCT: PENICILLIN G SODIUM
Active Ingredient: PENICILLIN G SODIUM
Strength: 5,000,000 UNITS/VIAL
Dosage Form/Route: INJECTABLE;INTRAMUSCULAR, INTRAVENOUS
Application: A065068 | Product #001
Applicant: SANDOZ INC
Approved: Feb 26, 2001 | RLD: No | RS: Yes | Type: RX